FAERS Safety Report 7170027-8 (Version None)
Quarter: 2010Q4

REPORT INFORMATION
  Report Type: 
  Country: None (occurrence: None)
  Receive Date: 20101206
  Receipt Date: 20101119
  Transmission Date: 20110411
  Serious: Yes (Death, Other)
  Sender: FDA-Public Use
  Company Number: 2010005125

PATIENT
  Age: 43 Year
  Sex: Female
  Weight: 65 kg

DRUGS (9)
  1. ERLOTINIB (ERLOTINIB) (OINTMENT) (ERLOTINIB) [Suspect]
     Indication: LUNG ADENOCARCINOMA
     Dosage: (150 MG,QD),ORAL
     Route: 048
     Dates: start: 20090604, end: 20090815
  2. ZOMETA [Concomitant]
  3. ALFACALCIDOL (ALFACACIDOL) [Concomitant]
  4. FAMOTIDINE [Concomitant]
  5. LASIX [Concomitant]
  6. BETAMETHASONE [Concomitant]
  7. ISOSORBIDE (ISOSORBIDE) [Concomitant]
  8. ALENDRONIC ACID (ALENDRONIC ACID) [Concomitant]
  9. ALDACTONE [Concomitant]

REACTIONS (8)
  - ACNE [None]
  - DIARRHOEA [None]
  - HAEMORRHAGIC DIATHESIS [None]
  - MALIGNANT NEOPLASM PROGRESSION [None]
  - NON-SMALL CELL LUNG CANCER [None]
  - PULMONARY EMBOLISM [None]
  - PURPURA [None]
  - RESPIRATORY FAILURE [None]
